FAERS Safety Report 25190450 (Version 1)
Quarter: 2025Q2

REPORT INFORMATION
  Report Type: Spontaneous
  Country: CZ (occurrence: CZ)
  Receive Date: 20250411
  Receipt Date: 20250411
  Transmission Date: 20250717
  Serious: Yes (Other)
  Sender: GLAXOSMITHKLINE
  Company Number: CZ-GSK-CZ2025EME041576

PATIENT

DRUGS (1)
  1. JEMPERLI [Suspect]
     Active Substance: DOSTARLIMAB-GXLY
     Indication: Endometrial cancer recurrent
     Route: 042
     Dates: start: 202211

REACTIONS (2)
  - Hypothyroidism [Not Recovered/Not Resolved]
  - Immune-mediated dermatitis [Unknown]

NARRATIVE: CASE EVENT DATE: 20231001
